FAERS Safety Report 5819802-X (Version None)
Quarter: 2008Q3

REPORT INFORMATION
  Report Type: 
  Country: None (occurrence: None)
  Receive Date: 20080723
  Receipt Date: 20080711
  Transmission Date: 20090109
  Serious: Yes (Other)
  Sender: FDA-Public Use
  Company Number: GB-PFIZER INC-2008059143

PATIENT
  Age: 64 Year
  Sex: Male
  Weight: 96 kg

DRUGS (1)
  1. CHANTIX [Suspect]
     Indication: SMOKING CESSATION THERAPY
     Route: 048
     Dates: start: 20080415, end: 20080620

REACTIONS (4)
  - AFFECT LABILITY [None]
  - CRYING [None]
  - PRURITUS [None]
  - PRURITUS GENERALISED [None]
